FAERS Safety Report 5299693-9 (Version None)
Quarter: 2007Q2

REPORT INFORMATION
  Report Type: 
  Country: None (occurrence: None)
  Receive Date: 20070410
  Receipt Date: 20070330
  Transmission Date: 20071010
  Serious: Yes (Death, Hospitalization)
  Sender: FDA-Public Use
  Company Number: GXKR2007CH03090

PATIENT
  Age: 87 Year
  Sex: Male

DRUGS (5)
  1. PREDNISONE [Suspect]
     Indication: AUTOIMMUNE DISORDER
  2. SPIRICORT (PREDNISOLONE) [Suspect]
     Indication: AUTOIMMUNE DISORDER
     Dosage: 5 MG
  3. CLINDAMYCIN [Concomitant]
  4. CIPROFLOXACIN [Concomitant]
  5. CEFTRIAXONE [Concomitant]

REACTIONS (5)
  - C-REACTIVE PROTEIN INCREASED [None]
  - LARGE INTESTINE PERFORATION [None]
  - LEUKOCYTOSIS [None]
  - PYREXIA [None]
  - SEPSIS [None]
